FAERS Safety Report 7675265-3 (Version None)
Quarter: 2011Q3

REPORT INFORMATION
  Report Type: 
  Country: None (occurrence: None)
  Receive Date: 20110810
  Receipt Date: 20110728
  Transmission Date: 20111222
  Serious: Yes (Other)
  Sender: FDA-Public Use
  Company Number: FR-GENENTECH-241124

PATIENT
  Sex: Female
  Weight: 83 kg

DRUGS (7)
  1. XOLAIR [Suspect]
     Dosage: 150 MG, 1/MONTH
     Dates: start: 20070301
  2. XOLAIR [Suspect]
     Indication: ASTHMA
     Dosage: 300 MG, QOW
     Route: 058
     Dates: start: 20070209, end: 20070424
  3. XOLAIR [Suspect]
     Dosage: 150 MG, 1/MONTH
     Dates: start: 20070401
  4. SINGULAIR [Concomitant]
     Indication: PRODUCT USED FOR UNKNOWN INDICATION
  5. SERETIDE [Concomitant]
     Indication: PRODUCT USED FOR UNKNOWN INDICATION
  6. CORTICOSTEROID NOS [Concomitant]
     Indication: PRODUCT USED FOR UNKNOWN INDICATION
  7. XOLAIR [Suspect]
     Dosage: 150 MG, 1/MONTH
     Dates: start: 20110501

REACTIONS (1)
  - WEIGHT INCREASED [None]
